FAERS Safety Report 8003955-1 (Version None)
Quarter: 2011Q4

REPORT INFORMATION
  Report Type: 
  Country: None (occurrence: None)
  Receive Date: 20111222
  Receipt Date: 20111215
  Transmission Date: 20120403
  Serious: Yes (Hospitalization, Other)
  Sender: FDA-Public Use
  Company Number: US-BAYER-2011-041013

PATIENT
  Age: 37 Year
  Sex: Female

DRUGS (12)
  1. BUPROPION HCL [Concomitant]
     Dosage: 200 MG, UNK
     Dates: start: 20090224
  2. AMBIEN CR [Concomitant]
     Dosage: 12.5 MG, UNK
     Dates: start: 20090224
  3. MULTIVITAMIN PREPARATION + MINERAL SUPPLEMENT [Concomitant]
     Dosage: UNK
     Dates: start: 19880101
  4. OMEPRAZOLE [Concomitant]
     Dosage: 20 MG, UNK
     Dates: start: 20090217
  5. YAZ [Suspect]
  6. LORAZEPAM [Concomitant]
     Dosage: 1 MG, UNK
     Dates: start: 20090205
  7. GLYCOPYRROLATE [Concomitant]
     Dosage: 2 MG, UNK
     Dates: start: 20090211
  8. BUSPIRONE HCL [Concomitant]
     Dosage: 15 MG, UNK
     Dates: start: 20090224
  9. FLUOXETINE [Concomitant]
     Dosage: 40 MG, UNK
     Dates: start: 20090224
  10. FAMOTIDINE [Concomitant]
     Dosage: 20 MG, UNK
     Dates: start: 20090319
  11. OXCARBAZEPINE [Concomitant]
     Dosage: 150 MG, UNK
     Dates: start: 20090314
  12. YAZ [Suspect]
     Indication: PREMENSTRUAL SYNDROME
     Dosage: UNK
     Route: 048
     Dates: start: 20070101, end: 20090101

REACTIONS (4)
  - CHOLECYSTITIS CHRONIC [None]
  - GALLBLADDER DISORDER [None]
  - PAIN [None]
  - INJURY [None]
